FAERS Safety Report 21798636 (Version 1)
Quarter: 2022Q4

REPORT INFORMATION
  Report Type: Spontaneous
  Country: ES (occurrence: ES)
  Receive Date: 20221230
  Receipt Date: 20221230
  Transmission Date: 20230113
  Serious: No
  Sender: FDA-Public Use
  Company Number: ES-ALKEM LABORATORIES LIMITED-ES-ALKEM-2022-11716

PATIENT
  Age: 3 Year
  Sex: Male

DRUGS (3)
  1. SIROLIMUS [Suspect]
     Active Substance: SIROLIMUS
     Indication: Lymphangioma
     Dosage: 0.8 MILLIGRAM/SQ. METER, BID
     Route: 048
     Dates: start: 201603
  2. SIROLIMUS [Suspect]
     Active Substance: SIROLIMUS
     Indication: Malformation venous
  3. Trimethoprim-sulfamethoxazole prophylaxis [Concomitant]
     Indication: Antifungal prophylaxis
     Dosage: UNK (2 DAYS A WEEK)
     Route: 065

REACTIONS (1)
  - Blood cholesterol increased [Unknown]
